FAERS Safety Report 22319143 (Version 4)
Quarter: 2023Q4

REPORT INFORMATION
  Report Type: Spontaneous
  Country: CA (occurrence: CA)
  Receive Date: 20230515
  Receipt Date: 20231204
  Transmission Date: 20240110
  Serious: Yes (Hospitalization, Other)
  Sender: FDA-Public Use
  Company Number: CA-PFIZER INC-202201173710

PATIENT
  Age: 71 Year
  Sex: Female
  Weight: 70 kg

DRUGS (6)
  1. RUXIENCE [Suspect]
     Active Substance: RITUXIMAB-PVVR
     Indication: Vasculitis
     Dosage: 1 G, 2 DOSES, 14 DAYS APART
     Route: 042
     Dates: start: 20221117, end: 20221117
  2. RUXIENCE [Suspect]
     Active Substance: RITUXIMAB-PVVR
     Indication: Scleroderma
     Dosage: 1 G, EVRY 2 WEEK 2 DOSES
     Route: 042
     Dates: start: 20221117, end: 20221201
  3. RUXIENCE [Suspect]
     Active Substance: RITUXIMAB-PVVR
     Dosage: 1 G, 2 DOSES, 14 DAYS APART
     Route: 042
     Dates: start: 20221201, end: 20221201
  4. RUXIENCE [Suspect]
     Active Substance: RITUXIMAB-PVVR
     Dosage: 500 MG, EVERY 6X4, AFTER 30 WEEKS
     Route: 042
     Dates: start: 20230629
  5. PREDNISOLONE ACETATE [Concomitant]
     Active Substance: PREDNISOLONE ACETATE
     Dosage: 5 MG EVERY 2 WEEKS (PLAN OF QUICK TAPER)
  6. PREDNISOLONE ACETATE [Concomitant]
     Active Substance: PREDNISOLONE ACETATE
     Dosage: 50 MG, 1X/DAY

REACTIONS (8)
  - Pericarditis [Unknown]
  - Clostridium difficile infection [Recovering/Resolving]
  - Central venous catheterisation [Unknown]
  - Dyspnoea [Unknown]
  - Fatigue [Unknown]
  - Infusion site pain [Unknown]
  - Off label use [Unknown]
  - Drug effective for unapproved indication [Unknown]

NARRATIVE: CASE EVENT DATE: 20221117
